FAERS Safety Report 5574994-5 (Version None)
Quarter: 2007Q4

REPORT INFORMATION
  Report Type: 
  Country: None (occurrence: None)
  Receive Date: 20071227
  Receipt Date: 20071219
  Transmission Date: 20080405
  Serious: Yes (Life-Threatening, Hospitalization)
  Sender: FDA-Public Use
  Company Number: B0500915A

PATIENT
  Sex: Female

DRUGS (2)
  1. AUGMENTIN '125' [Suspect]
     Indication: UPPER RESPIRATORY TRACT INFECTION
     Dosage: 375MG SINGLE DOSE
     Route: 048
     Dates: start: 20071201, end: 20071201
  2. GINKGO BILOBA [Concomitant]

REACTIONS (1)
  - ANAPHYLACTIC REACTION [None]
